FAERS Safety Report 21519569 (Version 1)
Quarter: 2022Q4

REPORT INFORMATION
  Report Type: Spontaneous
  Country: US (occurrence: None)
  Receive Date: 20221027
  Receipt Date: 20221027
  Transmission Date: 20230112
  Serious: No
  Sender: FDA-Public Use
  Company Number: None

PATIENT
  Age: 44 Year
  Sex: Female

DRUGS (2)
  1. BOSENTAN [Suspect]
     Active Substance: BOSENTAN
     Indication: Cor pulmonale
     Dosage: FREQUENCY : TWICE A DAY;?
     Route: 048
     Dates: start: 20190701
  2. SILDENAFIL [Suspect]
     Active Substance: SILDENAFIL

REACTIONS (5)
  - Acute respiratory failure [None]
  - Cellulitis [None]
  - Disease progression [None]
  - Hypotension [None]
  - Cardiogenic shock [None]

NARRATIVE: CASE EVENT DATE: 20220921
